FAERS Safety Report 8339285-8 (Version None)
Quarter: 2012Q2

REPORT INFORMATION
  Report Type: 
  Country: None (occurrence: None)
  Receive Date: 20120507
  Receipt Date: 20120426
  Transmission Date: 20120825
  Serious: Yes (Hospitalization, Other)
  Sender: FDA-Public Use
  Company Number: US-SANOFI-AVENTIS-2012SA029829

PATIENT
  Sex: Female

DRUGS (2)
  1. SOLOSTAR [Suspect]
  2. LANTUS [Suspect]
     Dosage: DOSE:8 UNIT(S)
     Route: 058

REACTIONS (1)
  - CEREBROVASCULAR ACCIDENT [None]
